FAERS Safety Report 8447549-2 (Version None)
Quarter: 2012Q2

REPORT INFORMATION
  Report Type: 
  Country: None (occurrence: None)
  Receive Date: 20120619
  Receipt Date: 20120611
  Transmission Date: 20120825
  Serious: Yes (Hospitalization)
  Sender: FDA-Public Use
  Company Number: US-US-EMD SERONO, INC.-7132669

PATIENT
  Sex: Female

DRUGS (2)
  1. REBIF [Suspect]
     Indication: MULTIPLE SCLEROSIS
     Route: 058
     Dates: start: 20110525
  2. LIDOCAINE [Concomitant]
     Indication: MUSCLE SPASMS

REACTIONS (11)
  - HYPERTENSION [None]
  - MUSCLE SPASMS [None]
  - LOSS OF CONSCIOUSNESS [None]
  - HEART RATE INCREASED [None]
  - PYREXIA [None]
  - VISION BLURRED [None]
  - DIPLOPIA [None]
  - INTERVERTEBRAL DISC DISORDER [None]
  - INFLUENZA LIKE ILLNESS [None]
  - FALL [None]
  - MUSCULOSKELETAL PAIN [None]
